FAERS Safety Report 5079882-9 (Version None)
Quarter: 2006Q3

REPORT INFORMATION
  Report Type: 
  Country: None (occurrence: None)
  Receive Date: 20060809
  Receipt Date: 20050920
  Transmission Date: 20061208
  Serious: Yes (Other)
  Sender: FDA-Public Use
  Company Number: TRP_0822_2006

PATIENT
  Sex: Female

DRUGS (2)
  1. RIBASPHERE [Suspect]
     Dosage: 1200 MG QDAY PO
     Route: 048
     Dates: start: 20050422, end: 20050723
  2. PEGINTERFERON ALFA [Suspect]
     Dosage: 150 MCG QWK SC
     Route: 058
     Dates: start: 20050422, end: 20050723

REACTIONS (2)
  - ABORTION SPONTANEOUS [None]
  - TRANSMISSION OF DRUG VIA SEMEN [None]
